FAERS Safety Report 6025334-9 (Version None)
Quarter: 2008Q4

REPORT INFORMATION
  Report Type: 
  Country: None (occurrence: None)
  Receive Date: 20081231
  Receipt Date: 20081223
  Transmission Date: 20090506
  Serious: Yes (Hospitalization, Other)
  Sender: FDA-Public Use
  Company Number: US-MERCK-0711USA02136

PATIENT
  Age: 61 Year
  Sex: Female

DRUGS (1)
  1. FOSAMAX [Suspect]
     Indication: OSTEOPOROSIS
     Route: 048
     Dates: start: 20010101, end: 20060601

REACTIONS (12)
  - ANAEMIA [None]
  - DEVICE FAILURE [None]
  - FOREIGN BODY REACTION [None]
  - IMPAIRED HEALING [None]
  - JAW FRACTURE [None]
  - LUNG DISORDER [None]
  - NECK INJURY [None]
  - ORAL INFECTION [None]
  - OSTEOMYELITIS [None]
  - OSTEONECROSIS [None]
  - STRABISMUS [None]
  - WOUND DEHISCENCE [None]
